FAERS Safety Report 22167290 (Version 1)
Quarter: 2023Q1

REPORT INFORMATION
  Report Type: Spontaneous
  Country: US (occurrence: None)
  Receive Date: 20230331
  Receipt Date: 20230331
  Transmission Date: 20230418
  Serious: Yes (Hospitalization)
  Sender: FDA-Public Use
  Company Number: None

PATIENT
  Sex: Male

DRUGS (1)
  1. ZARXIO [Suspect]
     Active Substance: FILGRASTIM-SNDZ
     Indication: Stem cell transplant
     Dosage: OTHER STRENGTH : 300MCG/0.5ML;?
     Route: 058

REACTIONS (2)
  - Stem cell transplant [None]
  - Therapy interrupted [None]
